FAERS Safety Report 7249434-0 (Version None)
Quarter: 2011Q1

REPORT INFORMATION
  Report Type: 
  Country: None (occurrence: None)
  Receive Date: 20110128
  Receipt Date: 20101220
  Transmission Date: 20110831
  Serious: Yes (Other)
  Sender: FDA-Public Use
  Company Number: US-BAYER-2010-006337

PATIENT
  Sex: Female

DRUGS (2)
  1. BETASERON [Suspect]
     Indication: MULTIPLE SCLEROSIS
     Dosage: 2 MIU QOD
     Route: 058
     Dates: start: 20101202
  2. ADVIL [Concomitant]
     Indication: PRODUCT USED FOR UNKNOWN INDICATION

REACTIONS (9)
  - ALOPECIA [None]
  - CRYING [None]
  - FATIGUE [None]
  - MALAISE [None]
  - MIDDLE INSOMNIA [None]
  - DEPRESSED MOOD [None]
  - HEADACHE [None]
  - PARANOIA [None]
  - ANXIETY [None]
